FAERS Safety Report 24877535 (Version 1)
Quarter: 2025Q1

REPORT INFORMATION
  Report Type: Report from Study
  Country: CA (occurrence: CA)
  Receive Date: 20250123
  Receipt Date: 20250123
  Transmission Date: 20250409
  Serious: Yes (Other)
  Sender: NOVARTIS
  Company Number: CA-002147023-NVSC2025CA010564

PATIENT
  Age: 47 Year
  Sex: Female

DRUGS (1)
  1. COSENTYX [Suspect]
     Active Substance: SECUKINUMAB
     Indication: Ankylosing spondylitis
     Dosage: 300 MG, Q3W
     Route: 058
     Dates: start: 20220106

REACTIONS (8)
  - Pneumonia [Unknown]
  - Sinusitis [Unknown]
  - Illness [Unknown]
  - Asthma [Unknown]
  - Nasal congestion [Unknown]
  - Cough [Unknown]
  - Respiratory tract infection [Unknown]
  - Arthralgia [Unknown]

NARRATIVE: CASE EVENT DATE: 20250101
